FAERS Safety Report 8108276-4 (Version None)
Quarter: 2012Q1

REPORT INFORMATION
  Report Type: 
  Country: None (occurrence: None)
  Receive Date: 20120202
  Receipt Date: 20120119
  Transmission Date: 20120608
  Serious: Yes (Other)
  Sender: FDA-Public Use
  Company Number: PHHY2010DE87494

PATIENT
  Sex: Female
  Weight: 77 kg

DRUGS (2)
  1. FEMARA [Suspect]
     Indication: BREAST CANCER
     Dosage: 2.5 MG, DAILY
     Route: 048
     Dates: start: 20090801
  2. AMITRIPTYLINE HCL [Concomitant]
     Dates: end: 20111007

REACTIONS (9)
  - CARPAL TUNNEL SYNDROME [None]
  - ECZEMA [None]
  - INSOMNIA [None]
  - DEPRESSION [None]
  - BALANCE DISORDER [None]
  - PAIN [None]
  - ARTHRALGIA [None]
  - MEMORY IMPAIRMENT [None]
  - THIRST [None]
